FAERS Safety Report 12516851 (Version 1)
Quarter: 2016Q2

REPORT INFORMATION
  Report Type: Spontaneous
  Country: AU (occurrence: AU)
  Receive Date: 20160630
  Receipt Date: 20160630
  Transmission Date: 20160815
  Serious: Yes (Other)
  Sender: FDA-Public Use
  Company Number: AU-BAYER-2016-128514

PATIENT
  Age: 88 Year
  Sex: Female

DRUGS (10)
  1. BICOR [TERODILINE HYDROCHLORIDE] [Concomitant]
  2. NOVOMIX [INSULIN ASPART,INSULIN ASPART PROTAMINE (CRYSTALLINE)] [Concomitant]
  3. ONDANSETRON [Concomitant]
     Active Substance: ONDANSETRON
  4. PARACETAMOL [Concomitant]
     Active Substance: ACETAMINOPHEN
  5. TEMAZEPAM. [Concomitant]
     Active Substance: TEMAZEPAM
  6. CARTIA XT [Concomitant]
     Active Substance: DILTIAZEM HYDROCHLORIDE
  7. ULTRAVIST [Suspect]
     Active Substance: IOPROMIDE
     Indication: COMPUTERISED TOMOGRAM
     Dosage: 7.5 ML, STAT
     Route: 042
     Dates: start: 20160628, end: 20160628
  8. CEFTRIAXONE. [Concomitant]
     Active Substance: CEFTRIAXONE
  9. NEXIUM [Concomitant]
     Active Substance: ESOMEPRAZOLE MAGNESIUM
  10. TRAVATAN [Concomitant]
     Active Substance: TRAVOPROST

REACTIONS (2)
  - Sneezing [Recovering/Resolving]
  - Oral pruritus [Recovering/Resolving]

NARRATIVE: CASE EVENT DATE: 20160628
